FAERS Safety Report 16170256 (Version 1)
Quarter: 2019Q2

REPORT INFORMATION
  Report Type: Spontaneous
  Country: US (occurrence: US)
  Receive Date: 20190408
  Receipt Date: 20190408
  Transmission Date: 20190711
  Serious: No
  Sender: FDA-Public Use
  Company Number: US-MTPC-MTDA2019-0038330

PATIENT

DRUGS (2)
  1. RADICAVA [Suspect]
     Active Substance: EDARAVONE
     Indication: AMYOTROPHIC LATERAL SCLEROSIS
     Dosage: 60 MG DAILY FOR 14 DAYS, FOLLOWED BY 14 DAYS OFF
     Route: 042
     Dates: start: 20180803
  2. RADICAVA [Suspect]
     Active Substance: EDARAVONE
     Dosage: 60 MG, QD 10 DAYS OUT OF 14
     Route: 042
     Dates: end: 20181121

REACTIONS (1)
  - Disease progression [Not Recovered/Not Resolved]
